FAERS Safety Report 9207893 (Version 2)
Quarter: 2013Q2

REPORT INFORMATION
  Report Type: Spontaneous
  Country: IT (occurrence: IT)
  Receive Date: 20130403
  Receipt Date: 20130506
  Transmission Date: 20140414
  Serious: Yes (Hospitalization)
  Sender: FDA-Public Use
  Company Number: IT-TEVA-395090ISR

PATIENT
  Age: 34 Year
  Sex: Female

DRUGS (2)
  1. CLARITROMICINA TEVA [Suspect]
     Indication: OROPHARYNGEAL PAIN
     Dosage: 2 DOSAGE FORMS DAILY;
     Route: 048
     Dates: start: 20130320, end: 20130320
  2. TACHIPIRINA [Concomitant]

REACTIONS (2)
  - Erythema [Recovering/Resolving]
  - Dyspnoea [Recovering/Resolving]
